FAERS Safety Report 7834720-3 (Version None)
Quarter: 2011Q4

REPORT INFORMATION
  Report Type: 
  Country: None (occurrence: None)
  Receive Date: 20111024
  Receipt Date: 20111013
  Transmission Date: 20120403
  Serious: Yes (Hospitalization)
  Sender: FDA-Public Use
  Company Number: FR-JNJFOC-20110702826

PATIENT
  Sex: Male

DRUGS (8)
  1. DIPIPERON [Suspect]
     Indication: DEMENTIA ALZHEIMER'S TYPE
     Route: 048
  2. ATHYMIL [Suspect]
     Indication: DEMENTIA ALZHEIMER'S TYPE
     Route: 048
  3. DIPIPERON [Suspect]
     Route: 048
     Dates: end: 20110316
  4. MEMANTINE HYDROCHLORIDE [Suspect]
     Indication: DEMENTIA ALZHEIMER'S TYPE
     Route: 048
     Dates: end: 20110316
  5. IMOVANE [Suspect]
     Indication: DEMENTIA ALZHEIMER'S TYPE
     Route: 048
  6. ACETAMINOPHEN AND TRAMADOL HCL [Suspect]
     Indication: DEMENTIA ALZHEIMER'S TYPE
     Route: 048
  7. AMLODIPINE [Concomitant]
  8. LASIX [Concomitant]

REACTIONS (2)
  - SOMNOLENCE [None]
  - FALL [None]
